FAERS Safety Report 13824966 (Version 4)
Quarter: 2017Q4

REPORT INFORMATION
  Report Type: Spontaneous
  Country: ES (occurrence: ES)
  Receive Date: 20170802
  Receipt Date: 20171009
  Transmission Date: 20180320
  Serious: Yes (Other)
  Sender: FDA-Public Use
  Company Number: ES-PFIZER INC-2017329804

PATIENT
  Sex: Female

DRUGS (7)
  1. LYRICA [Suspect]
     Active Substance: PREGABALIN
     Dosage: 25 MG, ALTERNATE DAY
  2. LYRICA [Suspect]
     Active Substance: PREGABALIN
     Dosage: 25 MG, ALTERNATE DAY
  3. OMEPRAZOLE. [Concomitant]
     Active Substance: OMEPRAZOLE
     Indication: CHRONIC GASTRITIS
  4. ALMAX /00832801/ [Concomitant]
  5. CIDINE /00397401/ [Concomitant]
  6. LYRICA [Suspect]
     Active Substance: PREGABALIN
     Dosage: 100 MG, ALTERNATE DAY
  7. LYRICA [Suspect]
     Active Substance: PREGABALIN
     Dosage: 75 MG, ALTERNATE DAY

REACTIONS (8)
  - Muscle spasms [Unknown]
  - Crying [Unknown]
  - Polyneuropathy [Unknown]
  - Pain in extremity [Unknown]
  - Burning sensation [Unknown]
  - Feeling of despair [Unknown]
  - Drug ineffective [Unknown]
  - Sciatica [Unknown]
